FAERS Safety Report 5694453-9 (Version None)
Quarter: 2008Q2

REPORT INFORMATION
  Report Type: 
  Country: None (occurrence: None)
  Receive Date: 20080404
  Receipt Date: 20080326
  Transmission Date: 20081010
  Serious: Yes (Other)
  Sender: FDA-Public Use
  Company Number: PHHY2008JP03849

PATIENT
  Age: 54 Year
  Sex: Male

DRUGS (3)
  1. DIOVAN [Suspect]
     Indication: HYPERTENSION
     Dosage: 80 MG, QD
     Route: 048
     Dates: start: 20050101
  2. NORVASC [Concomitant]
     Route: 048
     Dates: start: 20050101
  3. CLARITIN [Concomitant]
     Route: 048
     Dates: start: 20080213

REACTIONS (3)
  - ALTERED STATE OF CONSCIOUSNESS [None]
  - CONFUSIONAL STATE [None]
  - HYPOGLYCAEMIA [None]
